FAERS Safety Report 13858538 (Version 2)
Quarter: 2017Q4

REPORT INFORMATION
  Report Type: Other
  Country: US (occurrence: US)
  Receive Date: 20170811
  Receipt Date: 20171204
  Transmission Date: 20180320
  Serious: Yes (Other)
  Sender: FDA-Public Use
  Company Number: US-APOTEX-2017AP014025

PATIENT
  Age: 30 Year
  Sex: Female

DRUGS (1)
  1. CLARISPRAY NASAL ALLERGY [Suspect]
     Active Substance: FLUTICASONE PROPIONATE
     Indication: HYPERSENSITIVITY
     Route: 045

REACTIONS (4)
  - Retching [Unknown]
  - Choking [Unknown]
  - Product taste abnormal [Unknown]
  - Upper-airway cough syndrome [Unknown]
